FAERS Safety Report 25010853 (Version 1)
Quarter: 2025Q1

REPORT INFORMATION
  Report Type: Spontaneous
  Country: US (occurrence: US)
  Receive Date: 20250225
  Receipt Date: 20250225
  Transmission Date: 20250409
  Serious: No
  Sender: ABBVIE
  Company Number: US-ABBVIE-6145680

PATIENT
  Age: 71 Year
  Sex: Female

DRUGS (1)
  1. LINACLOTIDE [Suspect]
     Active Substance: LINACLOTIDE
     Indication: Gastrointestinal motility disorder
     Route: 048

REACTIONS (3)
  - Myalgia [Unknown]
  - Product quality issue [Unknown]
  - Off label use [Unknown]
